FAERS Safety Report 9270772 (Version 1)
Quarter: 2013Q2

REPORT INFORMATION
  Report Type: Spontaneous
  Country: FR (occurrence: FR)
  Receive Date: 20130506
  Receipt Date: 20130506
  Transmission Date: 20140414
  Serious: Yes (Hospitalization)
  Sender: FDA-Public Use
  Company Number: FR-BRISTOL-MYERS SQUIBB COMPANY-18836668

PATIENT
  Age: 72 Year
  Sex: Male

DRUGS (2)
  1. COUMADINE [Suspect]
     Route: 048
     Dates: end: 20130114
  2. KARDEGIC [Suspect]
     Route: 048

REACTIONS (3)
  - Peripheral ischaemia [Recovered/Resolved]
  - International normalised ratio decreased [Recovered/Resolved]
  - Drug ineffective [Recovered/Resolved]
